FAERS Safety Report 15585490 (Version 1)
Quarter: 2018Q4

REPORT INFORMATION
  Report Type: Spontaneous
  Country: ZA (occurrence: ZA)
  Receive Date: 20181102
  Receipt Date: 20181102
  Transmission Date: 20190205
  Serious: Yes (Other)
  Sender: FDA-Public Use
  Company Number: ZA-PFIZER INC-2018449641

PATIENT
  Age: 72 Year
  Sex: Male

DRUGS (7)
  1. ALTOSEC [OMEPRAZOLE] [Suspect]
     Active Substance: OMEPRAZOLE
     Dosage: 20 MG, UNK
  2. ISMO [Suspect]
     Active Substance: ISOSORBIDE MONONITRATE
     Dosage: 20 MG, UNK
  3. PLAVIX [Suspect]
     Active Substance: CLOPIDOGREL BISULFATE
     Dosage: 75 MG, UNK
  4. ECOTRIN [Suspect]
     Active Substance: ASPIRIN
     Dosage: 81 MG, UNK
  5. LIPITOR [Suspect]
     Active Substance: ATORVASTATIN CALCIUM
     Dosage: 40 MG, UNK
  6. CARDICOR [Suspect]
     Active Substance: BISOPROLOL
     Dosage: 2.5 MG, UNK
  7. TAREG [Suspect]
     Active Substance: VALSARTAN
     Dosage: 160 MG, UNK

REACTIONS (1)
  - Myocardial infarction [Unknown]
